FAERS Safety Report 19946126 (Version 2)
Quarter: 2021Q4

REPORT INFORMATION
  Report Type: Report from Study
  Country: US (occurrence: US)
  Receive Date: 20211012
  Receipt Date: 20211116
  Transmission Date: 20220303
  Serious: No
  Sender: FDA-Public Use
  Company Number: US-NOVARTISTESTPH-NVSC2021US233309

PATIENT
  Sex: Male

DRUGS (1)
  1. ENTRESTO [Suspect]
     Active Substance: SACUBITRIL\VALSARTAN
     Indication: Product used for unknown indication
     Dosage: UNK UNK, BID
     Route: 048

REACTIONS (7)
  - Erection increased [Unknown]
  - Therapeutic response unexpected [Unknown]
  - Pain [Unknown]
  - Pain in extremity [Unknown]
  - Balance disorder [Unknown]
  - Weight decreased [Unknown]
  - Fatigue [Unknown]
